FAERS Safety Report 12361812 (Version 1)
Quarter: 2016Q2

REPORT INFORMATION
  Report Type: Spontaneous
  Country: US (occurrence: US)
  Receive Date: 20160512
  Receipt Date: 20160512
  Transmission Date: 20160815
  Serious: No
  Sender: FDA-Public Use
  Company Number: US-SA-2016SA063003

PATIENT
  Sex: Male

DRUGS (2)
  1. PRALUENT [Suspect]
     Active Substance: ALIROCUMAB
     Route: 065
  2. ALIROCUMAB PREFILLED PEN [Concomitant]
     Active Substance: ALIROCUMAB

REACTIONS (4)
  - Injection site hypoaesthesia [Unknown]
  - Injection site pruritus [Unknown]
  - Injection site paraesthesia [Unknown]
  - Injection site erythema [Unknown]

NARRATIVE: CASE EVENT DATE: 201603
